FAERS Safety Report 15637237 (Version 1)
Quarter: 2018Q4

REPORT INFORMATION
  Report Type: Spontaneous
  Country: DE (occurrence: DE)
  Receive Date: 20181120
  Receipt Date: 20181120
  Transmission Date: 20190205
  Serious: Yes (Other)
  Sender: FDA-Public Use
  Company Number: DE-TEVA-2018-DE-977136

PATIENT
  Sex: Female

DRUGS (1)
  1. COPAXONE [Suspect]
     Active Substance: GLATIRAMER ACETATE
     Indication: MULTIPLE SCLEROSIS
     Dates: start: 20150620

REACTIONS (5)
  - Injection site haematoma [Recovering/Resolving]
  - Injection site necrosis [Recovering/Resolving]
  - Injection site discolouration [Recovering/Resolving]
  - Injection site exfoliation [Recovering/Resolving]
  - Injection site discharge [Recovering/Resolving]

NARRATIVE: CASE EVENT DATE: 2018
